FAERS Safety Report 6460935-5 (Version None)
Quarter: 2009Q4

REPORT INFORMATION
  Report Type: 
  Country: None (occurrence: None)
  Receive Date: 20091130
  Receipt Date: 20091118
  Transmission Date: 20100525
  Serious: Yes (Hospitalization)
  Sender: FDA-Public Use
  Company Number: FR-WYE-H12306409

PATIENT
  Sex: Male

DRUGS (9)
  1. INIPOMP [Suspect]
     Route: 048
     Dates: start: 20090128, end: 20090213
  2. PARACETAMOL [Suspect]
     Dosage: UNKNOWN
     Dates: start: 20090128
  3. SERETIDE [Concomitant]
     Dosage: UNKNOWN
     Dates: start: 20090128
  4. TRANXENE [Concomitant]
     Dosage: UNKNOWN
     Dates: start: 20090128
  5. SPIRIVA [Concomitant]
     Dosage: UNKNOWN
     Dates: start: 20090128
  6. FORLAX [Concomitant]
     Dosage: UNKNOWN
     Dates: start: 20090128
  7. DETICENE [Suspect]
     Indication: MALIGNANT MELANOMA OF SITES OTHER THAN SKIN
     Dosage: 3 CYCLES: CYCLE 2, 1000 MG/M^2; CYCLE 3, 750 MG/M
     Route: 042
     Dates: start: 20090126, end: 20090225
  8. DETICENE [Suspect]
     Indication: METASTASES TO LUNG
  9. NEXIUM [Suspect]
     Dosage: UNKNOWN
     Route: 048
     Dates: start: 20090218

REACTIONS (3)
  - FAECES DISCOLOURED [None]
  - GASTROINTESTINAL HAEMORRHAGE [None]
  - PANCYTOPENIA [None]
